FAERS Safety Report 4343522-4 (Version None)
Quarter: 2004Q2

REPORT INFORMATION
  Report Type: 
  Country: None (occurrence: None)
  Receive Date: 20040419
  Receipt Date: 20040405
  Transmission Date: 20050107
  Serious: Yes (Other)
  Sender: FDA-Public Use
  Company Number: 200411662BCC

PATIENT
  Age: 20 Year
  Sex: Male
  Weight: 117.9352 kg

DRUGS (1)
  1. BACTINE LIQUID [Suspect]

REACTIONS (3)
  - EYE BURNS [None]
  - EYE PAIN [None]
  - EYE REDNESS [None]
